FAERS Safety Report 9052031 (Version 1)
Quarter: 2013Q1

REPORT INFORMATION
  Report Type: Report from Study
  Country: CA (occurrence: CA)
  Receive Date: 20130207
  Receipt Date: 20130207
  Transmission Date: 20140127
  Serious: Yes (Death, Hospitalization)
  Sender: FDA-Public Use
  Company Number: CA-JNJFOC-20130115109

PATIENT
  Age: 70 None
  Sex: Female

DRUGS (4)
  1. REMICADE [Suspect]
     Indication: RHEUMATOID ARTHRITIS
     Dosage: ONCE IN EVERY 6 TO 7 WEEKS
     Route: 042
     Dates: start: 20070507
  2. REMICADE [Suspect]
     Indication: RHEUMATOID ARTHRITIS
     Dosage: 49TH INFUSION
     Route: 042
     Dates: start: 20121004, end: 20121004
  3. MORPHINE [Concomitant]
     Route: 065
  4. ARAVA [Concomitant]
     Route: 065

REACTIONS (4)
  - Death [Fatal]
  - Neoplasm malignant [Unknown]
  - Dyspnoea [Unknown]
  - Oedema [Unknown]
